FAERS Safety Report 7149182-1 (Version None)
Quarter: 2010Q4

REPORT INFORMATION
  Report Type: 
  Country: None (occurrence: None)
  Receive Date: 20101209
  Receipt Date: 20101102
  Transmission Date: 20110411
  Serious: No
  Sender: FDA-Public Use
  Company Number: US-BAYER-201023568BCC

PATIENT
  Sex: Female
  Weight: 56.818 kg

DRUGS (2)
  1. MIDOL EXTENDED RELIEF CAPLETS [Suspect]
     Indication: DYSMENORRHOEA
     Dosage: 5 DF, 5ID
     Route: 048
     Dates: start: 20101001, end: 20100101
  2. MIDOL EXTENDED RELIEF CAPLETS [Suspect]
     Indication: HEADACHE
     Dosage: 1 DF, BID
     Route: 048
     Dates: start: 20101102, end: 20101102

REACTIONS (2)
  - HEADACHE [None]
  - MUSCLE SPASMS [None]
